FAERS Safety Report 6924974-X (Version None)
Quarter: 2010Q3

REPORT INFORMATION
  Report Type: 
  Country: None (occurrence: None)
  Receive Date: 20100816
  Receipt Date: 20100803
  Transmission Date: 20110219
  Serious: Yes (Life-Threatening)
  Sender: FDA-Public Use
  Company Number: US-BAYER-201035877GPV

PATIENT
  Age: 58 Year
  Sex: Male

DRUGS (4)
  1. ASPIRIN [Suspect]
  2. WARFARIN [Suspect]
     Indication: THROMBOSIS PROPHYLAXIS
     Dosage: TOTAL DAILY DOSE: 160 MG
  3. LOVENOX [Suspect]
  4. BETA-BLOCKERS [Concomitant]

REACTIONS (7)
  - ABDOMINAL DISCOMFORT [None]
  - COLONIC HAEMATOMA [None]
  - HAEMOGLOBIN DECREASED [None]
  - HYPERHIDROSIS [None]
  - HYPOVOLAEMIC SHOCK [None]
  - PERITONEAL PERFORATION [None]
  - SHOCK HAEMORRHAGIC [None]
